FAERS Safety Report 8589879-X (Version None)
Quarter: 2012Q3

REPORT INFORMATION
  Report Type: 
  Country: None (occurrence: None)
  Receive Date: 20120813
  Receipt Date: 20120802
  Transmission Date: 20120928
  Serious: Yes (Other)
  Sender: FDA-Public Use
  Company Number: PHHY2012DE049705

PATIENT
  Sex: Female
  Weight: 105 kg

DRUGS (6)
  1. LYRICA [Concomitant]
     Indication: FACIAL PAIN
     Dosage: 25 MG, BID
     Route: 048
  2. IBUPROFEN [Concomitant]
     Indication: PAIN
     Dosage: 400 MG, BID
     Route: 048
  3. TEGRETOL [Concomitant]
     Indication: FACIAL PAIN
     Dosage: 200 MG, BID
     Route: 048
  4. CITALOPRAM [Concomitant]
     Indication: DEPRESSED MOOD
     Dosage: 20 MG, BID
     Route: 048
  5. GILENYA [Suspect]
     Indication: MULTIPLE SCLEROSIS
     Dosage: 0.5 MG, QD
     Route: 048
     Dates: start: 20111214, end: 20120207
  6. LEVOTHYROXINE SODIUM [Concomitant]
     Dosage: 75 UG, UNK

REACTIONS (4)
  - VISUAL ACUITY REDUCED [None]
  - VISION BLURRED [None]
  - LATENT TUBERCULOSIS [None]
  - MACULAR OEDEMA [None]
